FAERS Safety Report 7376804-2 (Version None)
Quarter: 2011Q1

REPORT INFORMATION
  Report Type: 
  Country: None (occurrence: None)
  Receive Date: 20110325
  Receipt Date: 20110316
  Transmission Date: 20110831
  Serious: Yes (Other)
  Sender: FDA-Public Use
  Company Number: US-ASTRAZENECA-2011SE15018

PATIENT
  Age: 57 Year
  Sex: Female

DRUGS (4)
  1. LORAZEPAM [Concomitant]
  2. PROZAC [Concomitant]
  3. SEROQUEL [Suspect]
     Indication: POST-TRAUMATIC STRESS DISORDER
     Route: 048
  4. SEROQUEL [Suspect]
     Indication: BIPOLAR DISORDER
     Route: 048

REACTIONS (6)
  - NAUSEA [None]
  - BREAST CANCER [None]
  - ELECTROLYTE DEPLETION [None]
  - CONVULSION [None]
  - AMNESIA [None]
  - INAPPROPRIATE ANTIDIURETIC HORMONE SECRETION [None]
